FAERS Safety Report 7080636-2 (Version None)
Quarter: 2010Q4

REPORT INFORMATION
  Report Type: 
  Country: None (occurrence: None)
  Receive Date: 20101103
  Receipt Date: 20101029
  Transmission Date: 20110411
  Serious: Yes (Death, Other)
  Sender: FDA-Public Use
  Company Number: US-BRISTOL-MYERS SQUIBB COMPANY-15349673

PATIENT
  Age: 50 Year
  Sex: Male

DRUGS (4)
  1. TRAZODONE HCL [Suspect]
     Indication: BACK PAIN
  2. OXYCODONE HCL EXTENDED-RELEASE [Interacting]
     Indication: BACK PAIN
     Dosage: TOTAL DOSE 200 MG/DAY,CONTROLLED RELEASE
  3. DIAZEPAM [Interacting]
     Indication: BACK PAIN
  4. FLUOXETINE [Interacting]
     Indication: BACK PAIN
     Dosage: EVERY DAY BEFORE NOON.

REACTIONS (3)
  - DRUG DEPENDENCE [None]
  - DRUG INTERACTION [None]
  - DRUG TOXICITY [None]
